FAERS Safety Report 5404427-0 (Version None)
Quarter: 2007Q4

REPORT INFORMATION
  Report Type: 
  Country: None (occurrence: None)
  Receive Date: 20070711
  Receipt Date: 20061113
  Transmission Date: 20080405
  Serious: Yes (Hospitalization, Other)
  Sender: FDA-Public Use
  Company Number: 238339

PATIENT
  Age: 56 Year
  Sex: Female
  Weight: 81.6 kg

DRUGS (10)
  1. ACTIVELLA [Suspect]
     Indication: MENOPAUSAL SYMPTOMS
     Dosage: 0.5 MG-1.0 MG, ORAL
     Route: 048
     Dates: start: 20020930, end: 20021111
  2. PREMPRO [Suspect]
     Indication: MENOPAUSAL SYMPTOMS
  3. PREMARIN [Suspect]
     Indication: MENOPAUSAL SYMPTOMS
     Dosage: 0.9 MG
     Dates: start: 20000801, end: 20010701
  4. PROVERA [Suspect]
     Indication: MENOPAUSAL SYMPTOMS
  5. ESTROGEN NOS (ESTROGENS NOS) [Suspect]
     Indication: MENOPAUSAL SYMPTOMS
  6. MEDROXYPROGESTERONE ACETATE [Suspect]
     Indication: MENOPAUSAL SYMPTOMS
     Dosage: 10 MG
     Dates: start: 20000801, end: 20020628
  7. CENESTIN [Suspect]
     Indication: MENOPAUSAL SYMPTOMS
     Dosage: 1.25 MG
     Dates: start: 20010816, end: 20020810
  8. CELEXA (CITRALOPRAM HYDROBROMIDE) [Concomitant]
  9. PREVACID [Concomitant]
  10. MAXZIDE [Concomitant]

REACTIONS (1)
  - BREAST CANCER [None]
